FAERS Safety Report 4663297-9 (Version None)
Quarter: 2005Q2

REPORT INFORMATION
  Report Type: 
  Country: None (occurrence: None)
  Receive Date: 20050511
  Receipt Date: 20050404
  Transmission Date: 20051028
  Serious: Yes (Hospitalization)
  Sender: FDA-Public Use
  Company Number: 349911

PATIENT
  Age: 45 Year
  Sex: Male
  Weight: 62.1 kg

DRUGS (2)
  1. PEGASYS [Suspect]
     Indication: HEPATITIS C
     Dosage: 180 MCG 1 PER WEEK SUBCUTANEOUS
     Route: 058
     Dates: start: 20030623, end: 20031015
  2. COPEGUS [Suspect]
     Indication: DRUG USE FOR UNKNOWN INDICATION
     Dosage: 400 MG 2 PER DAY, ORAL
     Route: 048
     Dates: start: 20030623, end: 20031015

REACTIONS (1)
  - COLITIS ISCHAEMIC [None]
